FAERS Safety Report 8597097-4 (Version None)
Quarter: 2012Q3

REPORT INFORMATION
  Report Type: 
  Country: None (occurrence: None)
  Receive Date: 20120816
  Receipt Date: 20120806
  Transmission Date: 20120928
  Serious: Yes (Hospitalization)
  Sender: FDA-Public Use
  Company Number: CH-BIOGENIDEC-2012BI030630

PATIENT
  Age: 47 Year
  Sex: Female

DRUGS (2)
  1. INTERFERON BETA-1A [Suspect]
     Route: 030
     Dates: start: 20120601, end: 20120617
  2. INTERFERON BETA-1A [Suspect]
     Indication: MULTIPLE SCLEROSIS
     Route: 030
     Dates: start: 20120429, end: 20120601

REACTIONS (4)
  - NAUSEA [None]
  - MALAISE [None]
  - SUSAC'S SYNDROME [None]
  - MIGRAINE [None]
